FAERS Safety Report 16704281 (Version 4)
Quarter: 2019Q3

REPORT INFORMATION
  Report Type: Report from Study
  Country: FR (occurrence: FR)
  Receive Date: 20190814
  Receipt Date: 20190910
  Transmission Date: 20191004
  Serious: Yes (Life-Threatening, Hospitalization, Other)
  Sender: FDA-Public Use
  Company Number: FR-MYLANLABS-2019M1076152

PATIENT
  Age: 67 Year
  Sex: Female
  Weight: 64 kg

DRUGS (15)
  1. METFORMIN [Suspect]
     Active Substance: METFORMIN HYDROCHLORIDE
     Indication: TYPE 2 DIABETES MELLITUS
     Dosage: 3000 MG, DAILY
     Route: 048
  2. PERINDOPRIL + INDAPAMIDA SANDOZ [Suspect]
     Active Substance: INDAPAMIDE\PERINDOPRIL ERBUMINE
     Indication: HYPERTENSION
     Dosage: UNK
  3. RILMENIDINE [Concomitant]
     Active Substance: RILMENIDINE
     Indication: PRODUCT USED FOR UNKNOWN INDICATION
     Dosage: 1 MILLIGRAM, QD
     Route: 065
  4. INEGY [Suspect]
     Active Substance: EZETIMIBE\SIMVASTATIN
     Indication: DYSLIPIDAEMIA
     Dosage: 10 MILLIGRAM, QD, (10 MG/ 20 MG) DAILY
     Route: 065
     Dates: end: 20190307
  5. KARDEGIC [Concomitant]
     Active Substance: ASPIRIN DL-LYSINE
     Indication: PRODUCT USED FOR UNKNOWN INDICATION
     Dosage: 75 MG, DAILY
     Route: 065
  6. VOTRIENT [Suspect]
     Active Substance: PAZOPANIB HYDROCHLORIDE
     Indication: RENAL CANCER METASTATIC
     Dosage: 800 MILLIGRAM, QD (800 MG, DAILY)
     Route: 048
     Dates: start: 20181213
  7. JANUVIA [Suspect]
     Active Substance: SITAGLIPTIN PHOSPHATE
     Indication: TYPE 2 DIABETES MELLITUS
     Dosage: 100 MILLIGRAM, DAILY
     Route: 065
     Dates: end: 20190307
  8. METFORMIN [Suspect]
     Active Substance: METFORMIN HYDROCHLORIDE
     Dosage: 1000 DF, UNK
     Route: 048
     Dates: end: 20190307
  9. BISOPROLOL [Suspect]
     Active Substance: BISOPROLOL
     Indication: HYPERTENSION
     Dosage: 10 MILLIGRAM, QD
     Route: 065
     Dates: end: 20190307
  10. ACARBOSE. [Suspect]
     Active Substance: ACARBOSE
     Indication: TYPE 2 DIABETES MELLITUS
     Dosage: 150 MILLIGRAM, QD
     Route: 065
     Dates: end: 20190307
  11. VOTRIENT [Suspect]
     Active Substance: PAZOPANIB HYDROCHLORIDE
     Dosage: 600 MG, DAILY
     Route: 048
     Dates: start: 20190226, end: 20190307
  12. PERINDOPRIL + INDAPAMIDA SANDOZ [Suspect]
     Active Substance: INDAPAMIDE\PERINDOPRIL ERBUMINE
     Dosage: UNK
     Route: 065
     Dates: start: 20190307
  13. LANTUS [Suspect]
     Active Substance: INSULIN GLARGINE
     Indication: TYPE 2 DIABETES MELLITUS
     Dosage: 50IU, DAILY
     Route: 065
     Dates: end: 20190307
  14. RILMENIDINE BIOGARAN [Suspect]
     Active Substance: RILMENIDINE
     Indication: HYPERTENSION
     Dosage: 1 MG, DAILY
     Route: 065
  15. RILMENIDINE BIOGARAN [Suspect]
     Active Substance: RILMENIDINE
     Dosage: 1 DOSAGE FORM ,1 DF (1 UG/ LITER),
     Route: 048
     Dates: start: 20190307

REACTIONS (18)
  - General physical health deterioration [Unknown]
  - Blood pressure systolic increased [Unknown]
  - Blood pressure systolic decreased [Unknown]
  - Decreased appetite [Unknown]
  - Diarrhoea [Recovering/Resolving]
  - Peripheral artery haematoma [Unknown]
  - Pneumonia [Recovering/Resolving]
  - Lactic acidosis [Recovering/Resolving]
  - Shock [Recovered/Resolved]
  - Accidental overdose [Unknown]
  - Vomiting [Recovered/Resolved]
  - Coma [Recovered/Resolved]
  - Hyperkalaemia [Recovered/Resolved]
  - Metabolic acidosis [Unknown]
  - Heart rate decreased [Unknown]
  - Acute kidney injury [Recovering/Resolving]
  - Dehydration [Recovered/Resolved]
  - Staphylococcal sepsis [Recovering/Resolving]

NARRATIVE: CASE EVENT DATE: 201902
